FAERS Safety Report 10195957 (Version 2)
Quarter: 2014Q2

REPORT INFORMATION
  Report Type: Spontaneous
  Country: GB (occurrence: GB)
  Receive Date: 20140527
  Receipt Date: 20140602
  Transmission Date: 20141212
  Serious: Yes (Other)
  Sender: FDA-Public Use
  Company Number: GB-JNJFOC-20140508367

PATIENT
  Age: 62 Year
  Sex: Male

DRUGS (8)
  1. DOXORUBICIN [Suspect]
     Indication: HEPATIC CANCER
     Route: 042
     Dates: start: 20131125
  2. CYCLOPHOSPHAMIDE [Suspect]
     Indication: HEPATIC CANCER
     Route: 065
     Dates: start: 20131125
  3. PREDNISOLONE [Suspect]
     Indication: HEPATIC CANCER
     Route: 065
     Dates: start: 20131125
  4. VINCRISTINE [Suspect]
     Indication: PRODUCT USED FOR UNKNOWN INDICATION
     Route: 065
     Dates: start: 20131125
  5. ZAPONEX [Suspect]
     Indication: SCHIZOPHRENIA
     Dosage: 100 MG MORNING 100 MG AT LUNCH AND 100 MG AT NIGHT
     Route: 048
     Dates: start: 20041011
  6. AMISULPRIDE [Concomitant]
     Indication: SCHIZOPHRENIA
     Route: 048
  7. FLUOXETINE [Concomitant]
     Indication: DEPRESSION
     Route: 065
  8. GRANULOCYTE-COLONY STIMULATING FACTOR [Concomitant]
     Indication: BONE MARROW FAILURE
     Route: 065
     Dates: start: 20131125

REACTIONS (7)
  - Sarcoma metastatic [Not Recovered/Not Resolved]
  - Neutrophil count increased [Recovered/Resolved]
  - White blood cell count decreased [Recovered/Resolved]
  - Leukopenia [Recovered/Resolved]
  - Neutropenia [Recovered/Resolved]
  - White blood cell count increased [Recovered/Resolved]
  - Off label use [Unknown]
